FAERS Safety Report 10969134 (Version 1)
Quarter: 2015Q1

REPORT INFORMATION
  Report Type: Spontaneous
  Country: IR (occurrence: None)
  Receive Date: 20150327
  Receipt Date: 20150327
  Transmission Date: 20150721
  Serious: Yes (Death)
  Sender: FDA-Public Use
  Company Number: 2015JUB00088

PATIENT

DRUGS (1)
  1. CARBAMAZEPINE (CARBAMAZEPINE) UNKNOWN [Suspect]
     Active Substance: CARBAMAZEPINE
     Route: 048

REACTIONS (4)
  - Pneumonia aspiration [None]
  - Overdose [None]
  - Toxicity to various agents [None]
  - Status epilepticus [None]
